FAERS Safety Report 17909449 (Version 2)
Quarter: 2021Q2

REPORT INFORMATION
  Report Type: Spontaneous
  Country: NO (occurrence: NO)
  Receive Date: 20200618
  Receipt Date: 20210629
  Transmission Date: 20210717
  Serious: Yes (Other)
  Sender: FDA-Public Use
  Company Number: NO-TEVA-2020-NO-1788541

PATIENT
  Age: 49 Year
  Sex: Female

DRUGS (4)
  1. PAROXETIN ACTAVIS [Suspect]
     Active Substance: PAROXETINE HYDROCHLORIDE
     Route: 065
  2. PAROXETIN ACTAVIS [Suspect]
     Active Substance: PAROXETINE HYDROCHLORIDE
     Indication: POST-TRAUMATIC STRESS DISORDER
     Dosage: TAKEN FOR MORE THAN 10 YEARS
     Route: 065
  3. PAROXETIN ACTAVIS [Suspect]
     Active Substance: PAROXETINE HYDROCHLORIDE
     Route: 065
  4. PAROXETIN ACTAVIS [Suspect]
     Active Substance: PAROXETINE HYDROCHLORIDE
     Dosage: ON DAY 15
     Route: 065

REACTIONS (11)
  - Coordination abnormal [Not Recovered/Not Resolved]
  - Psychotic disorder [Not Recovered/Not Resolved]
  - Feeling abnormal [Not Recovered/Not Resolved]
  - General physical health deterioration [Not Recovered/Not Resolved]
  - Mental impairment [Not Recovered/Not Resolved]
  - Rash vesicular [Not Recovered/Not Resolved]
  - Restlessness [Not Recovered/Not Resolved]
  - Depersonalisation/derealisation disorder [Not Recovered/Not Resolved]
  - Anxiety [Not Recovered/Not Resolved]
  - Negative thoughts [Not Recovered/Not Resolved]
  - Panic reaction [Not Recovered/Not Resolved]
